FAERS Safety Report 18794930 (Version 1)
Quarter: 2021Q1

REPORT INFORMATION
  Report Type: Spontaneous
  Country: US (occurrence: US)
  Receive Date: 20210127
  Receipt Date: 20210127
  Transmission Date: 20210419
  Serious: No
  Sender: FDA-Public Use
  Company Number: None

PATIENT
  Age: 84 Year
  Sex: Female
  Weight: 52.7 kg

DRUGS (11)
  1. VITAMIN D [Concomitant]
     Active Substance: VITAMIN D NOS
  2. XGEVA [Concomitant]
     Active Substance: DENOSUMAB
  3. ASPIRIN. [Concomitant]
     Active Substance: ASPIRIN
  4. IBRANCE [Concomitant]
     Active Substance: PALBOCICLIB
  5. IBRANCE [Suspect]
     Active Substance: PALBOCICLIB
     Indication: BREAST CANCER
     Dosage: ?          OTHER FREQUENCY:DAILY FOR 21/28D;?
     Route: 048
  6. FASLODEX [Concomitant]
     Active Substance: FULVESTRANT
  7. METOPROLOL. [Concomitant]
     Active Substance: METOPROLOL
  8. PEPCID [Concomitant]
     Active Substance: FAMOTIDINE
  9. VITAMIN B [Concomitant]
     Active Substance: VITAMIN B
  10. LIPITOR [Concomitant]
     Active Substance: ATORVASTATIN CALCIUM
  11. PLAVIX [Concomitant]
     Active Substance: CLOPIDOGREL BISULFATE

REACTIONS (2)
  - Alopecia [None]
  - Fatigue [None]

NARRATIVE: CASE EVENT DATE: 20210127
